FAERS Safety Report 19312437 (Version 13)
Quarter: 2021Q4

REPORT INFORMATION
  Report Type: Report from Study
  Country: US (occurrence: US)
  Receive Date: 20210527
  Receipt Date: 20211208
  Transmission Date: 20220303
  Serious: Yes (Other)
  Sender: FDA-Public Use
  Company Number: US-NOVARTISPH-NVSC2021US112970

PATIENT
  Age: 55 Year
  Sex: Female

DRUGS (2)
  1. KESIMPTA [Suspect]
     Active Substance: OFATUMUMAB
     Indication: Relapsing multiple sclerosis
     Dosage: UNK, QMO
     Route: 058
     Dates: start: 202104
  2. KESIMPTA [Suspect]
     Active Substance: OFATUMUMAB
     Dosage: UNK
     Route: 058

REACTIONS (21)
  - Pertussis [Unknown]
  - Irritable bowel syndrome [Recovering/Resolving]
  - Gastrointestinal disorder [Recovering/Resolving]
  - Diarrhoea [Recovering/Resolving]
  - Paraesthesia [Recovered/Resolved]
  - Muscle spasms [Unknown]
  - Altered visual depth perception [Unknown]
  - Fatigue [Unknown]
  - Pain [Unknown]
  - Trigeminal neuralgia [Unknown]
  - Anxiety [Unknown]
  - Pain in extremity [Unknown]
  - Speech disorder [Unknown]
  - Malaise [Unknown]
  - Sinus disorder [Unknown]
  - Feeling abnormal [Unknown]
  - Aphonia [Unknown]
  - Upper respiratory tract infection [Unknown]
  - Headache [Unknown]
  - Injection site pain [Unknown]
  - Device colour issue [Unknown]

NARRATIVE: CASE EVENT DATE: 20210401
